FAERS Safety Report 8812223 (Version 1)
Quarter: 2012Q4

REPORT INFORMATION
  Report Type: Spontaneous
  Country: IT (occurrence: None)
  Receive Date: 20120925
  Receipt Date: 20120925
  Transmission Date: 20130627
  Serious: Yes (Hospitalization, Other)
  Sender: FDA-Public Use
  Company Number: 2012/136

PATIENT
  Age: 40 Year
  Sex: Female

DRUGS (3)
  1. OLANZAPINE [Suspect]
     Route: 048
     Dates: start: 201008, end: 201008
  2. PROMAZINE [Concomitant]
  3. DIAZEPAM [Concomitant]

REACTIONS (5)
  - Neuroleptic malignant syndrome [None]
  - Psychomotor hyperactivity [None]
  - Tachycardia [None]
  - Tachypnoea [None]
  - Rhabdomyolysis [None]
